FAERS Safety Report 8770141 (Version 1)
Quarter: 2012Q4

REPORT INFORMATION
  Report Type: 
  Country: US (occurrence: US)
  Receive Date: 20120905
  Receipt Date: 20120905
  Transmission Date: 20130627
  Serious: Yes (Hospitalization, Other)
  Sender: FDA-Public Use
  Company Number: US-NOVOPROD-358916

PATIENT
  Age: 41 Year
  Sex: Female
  Weight: 85.71 kg

DRUGS (1)
  1. LEVEMIR [Suspect]
     Indication: TYPE 2 DIABETES MELLITUS
     Dosage: 15 U, qd
     Route: 058
     Dates: start: 2010

REACTIONS (2)
  - Renal failure [Not Recovered/Not Resolved]
  - Dehydration [Unknown]
